FAERS Safety Report 15737272 (Version 3)
Quarter: 2019Q1

REPORT INFORMATION
  Report Type: Spontaneous
  Country: US (occurrence: US)
  Receive Date: 20181218
  Receipt Date: 20190128
  Transmission Date: 20190417
  Serious: No
  Sender: FDA-Public Use
  Company Number: US-ASTRAZENECA-2018SF63137

PATIENT
  Sex: Male
  Weight: 80.7 kg

DRUGS (3)
  1. ATORVASTATIN [Concomitant]
     Active Substance: ATORVASTATIN
     Indication: BLOOD CHOLESTEROL INCREASED
     Route: 048
  2. LISINOPRIL. [Suspect]
     Active Substance: LISINOPRIL
     Indication: HYPERTENSION
     Dosage: 10- 15 YEARS
     Route: 048
  3. PULMICORT FLEXHALER [Suspect]
     Active Substance: BUDESONIDE
     Indication: ASTHMA
     Dosage: 180 MCG ONE PUFF PER DAY
     Route: 055
     Dates: start: 2006

REACTIONS (9)
  - Nasal congestion [Unknown]
  - Hypertension [Unknown]
  - Sleep disorder [Unknown]
  - Chest discomfort [Unknown]
  - Device issue [Unknown]
  - Blood cholesterol increased [Unknown]
  - Device malfunction [Unknown]
  - Nasopharyngitis [Unknown]
  - Circumstance or information capable of leading to medication error [Unknown]
